FAERS Safety Report 8044067-0 (Version None)
Quarter: 2012Q1

REPORT INFORMATION
  Report Type: 
  Country: None (occurrence: None)
  Receive Date: 20120113
  Receipt Date: 20120105
  Transmission Date: 20120608
  Serious: Yes (Death, Other)
  Sender: FDA-Public Use
  Company Number: US-JNJFOC-20111203064

PATIENT
  Age: 75 Year
  Sex: Male

DRUGS (16)
  1. ZOFRAN [Concomitant]
     Indication: NAUSEA
     Dosage: AS NEEDED
     Route: 042
  2. LEVOFLOXACIN [Concomitant]
     Route: 042
  3. LEVOSALBUTAMOL [Concomitant]
     Route: 065
  4. ZOFRAN [Concomitant]
     Indication: VOMITING
     Dosage: AS NEEDED
     Route: 042
  5. ABIRATERONE ACETATE [Suspect]
     Route: 048
  6. ATORVASTATIN [Concomitant]
     Route: 048
  7. IPRATROPIUM BROMIDE [Concomitant]
     Dosage: NEBULISED TREATMENT
     Route: 065
  8. ACETAMINOPHEN [Concomitant]
     Indication: PYREXIA
     Dosage: AS NEEDED
     Route: 048
  9. ZOSYN [Concomitant]
     Route: 065
  10. SENOKOT [Concomitant]
     Indication: CONSTIPATION
     Dosage: AS NEEDED
     Route: 048
  11. ABIRATERONE ACETATE [Suspect]
     Indication: PROSTATE CANCER
     Route: 048
     Dates: start: 20110723, end: 20111024
  12. PREDNISONE [Suspect]
     Indication: PROSTATE CANCER
     Route: 065
     Dates: start: 20110723, end: 20111024
  13. SUTENT [Suspect]
     Indication: PROSTATE CANCER
     Dosage: 2 WEEKS ON 1 WEEK OFF
     Route: 048
     Dates: start: 20111011
  14. OXYCODONE HCL [Concomitant]
     Indication: PAIN
     Dosage: AS NEEDED
     Route: 048
  15. FLOMAX [Concomitant]
     Route: 048
  16. LOVENOX [Concomitant]
     Route: 058

REACTIONS (1)
  - PNEUMONIA [None]
